FAERS Safety Report 21480047 (Version 3)
Quarter: 2022Q4

REPORT INFORMATION
  Report Type: Spontaneous
  Country: US (occurrence: US)
  Receive Date: 20221019
  Receipt Date: 20221110
  Transmission Date: 20230112
  Serious: Yes (Death, Life-Threatening, Other)
  Sender: FDA-Public Use
  Company Number: US-GILEAD-2022-0601786

PATIENT
  Age: 52 Year
  Sex: Male
  Weight: 124.9 kg

DRUGS (76)
  1. TECARTUS [Suspect]
     Active Substance: BREXUCABTAGENE AUTOLEUCEL
     Indication: Acute lymphocytic leukaemia
     Dosage: UNK
     Route: 065
     Dates: start: 20221007, end: 20221007
  2. LEVETIRACETAM [Concomitant]
     Active Substance: LEVETIRACETAM
     Dosage: 500 MG
     Route: 048
     Dates: start: 20221007, end: 20221013
  3. LEVETIRACETAM [Concomitant]
     Active Substance: LEVETIRACETAM
     Dosage: 500 MG
     Route: 042
     Dates: start: 20221013, end: 20221015
  4. ACETAMINOPHEN [Concomitant]
     Active Substance: ACETAMINOPHEN
  5. ALUMINUM HYDROXIDE\DIMETHICONE\MAGNESIUM HYDROXIDE [Concomitant]
     Active Substance: ALUMINUM HYDROXIDE\DIMETHICONE\MAGNESIUM HYDROXIDE
  6. DEXAMETHASONE [Concomitant]
     Active Substance: DEXAMETHASONE
     Dosage: 10 MG
     Route: 042
     Dates: start: 20221012
  7. DEXAMETHASONE [Concomitant]
     Active Substance: DEXAMETHASONE
     Dosage: 10 MG
     Route: 042
     Dates: start: 20221013
  8. DEXAMETHASONE [Concomitant]
     Active Substance: DEXAMETHASONE
     Dosage: 10 MG
     Route: 042
     Dates: start: 20221015
  9. METHYLPREDNISOLONE [Concomitant]
     Active Substance: METHYLPREDNISOLONE
     Dosage: 1000 MG
     Route: 042
     Dates: start: 20221014
  10. METHYLPREDNISOLONE [Concomitant]
     Active Substance: METHYLPREDNISOLONE
     Dosage: 1000 MG
     Route: 042
     Dates: start: 20221015
  11. METHYLPREDNISOLONE [Concomitant]
     Active Substance: METHYLPREDNISOLONE
     Dosage: 1000 MG
     Route: 042
     Dates: start: 20221015
  12. CALCIUM GLUCONATE [Concomitant]
     Active Substance: CALCIUM GLUCONATE
  13. DIPHENHYDRAMINE [Concomitant]
     Active Substance: DIPHENHYDRAMINE
  14. DEXTROSE [Concomitant]
     Active Substance: DEXTROSE
  15. EPINEPHRINE [Concomitant]
     Active Substance: EPINEPHRINE
  16. ETANERCEPT BIOSIMILAR 1 [Concomitant]
  17. ETOMIDATE [Concomitant]
     Active Substance: ETOMIDATE
  18. INSULIN REGULAR BEEF [Concomitant]
  19. CALCIUM CHLORIDE\POTASSIUM CHLORIDE\SODIUM CHLORIDE\SODIUM LACTATE [Concomitant]
     Active Substance: CALCIUM CHLORIDE\POTASSIUM CHLORIDE\SODIUM CHLORIDE\SODIUM LACTATE
  20. MAGNESIUM SULFATE [Concomitant]
     Active Substance: MAGNESIUM SULFATE
  21. METOPROLOL SUCCINATE [Concomitant]
     Active Substance: METOPROLOL SUCCINATE
  22. MIDAZOLAM [Concomitant]
     Active Substance: MIDAZOLAM
  23. PERFLUTREN [Concomitant]
     Active Substance: PERFLUTREN
  24. SODIUM CHLORIDE [Concomitant]
     Active Substance: SODIUM CHLORIDE
  25. SODIUM PHOSPHATES RECTAL [Concomitant]
  26. ACYCLOVIR ABBOTT VIAL [Concomitant]
  27. AMLODIPINE [Concomitant]
     Active Substance: AMLODIPINE BESYLATE
  28. ANGIOTENSIN II [Concomitant]
     Active Substance: ANGIOTENSIN II
  29. APIXABAN [Concomitant]
     Active Substance: APIXABAN
  30. ATOVAQUONE [Concomitant]
     Active Substance: ATOVAQUONE
  31. ATROPINE [Concomitant]
     Active Substance: ATROPINE
  32. SODIUM BICARBONATE [Concomitant]
     Active Substance: SODIUM BICARBONATE
  33. CEFDINIR [Concomitant]
     Active Substance: CEFDINIR
  34. DAPTOMYCIN [Concomitant]
     Active Substance: DAPTOMYCIN
  35. DORZOLAMIDE HYDROCHLORIDE\TIMOLOL MALEATE [Concomitant]
     Active Substance: DORZOLAMIDE HYDROCHLORIDE\TIMOLOL MALEATE
  36. FAMOTIDINE [Concomitant]
     Active Substance: FAMOTIDINE
  37. FLUCONAZOLE [Concomitant]
     Active Substance: FLUCONAZOLE
  38. GLUCAGON [Concomitant]
     Active Substance: GLUCAGON
  39. DEXTROSE [Concomitant]
     Active Substance: DEXTROSE
  40. GUAIFENESIN [Concomitant]
     Active Substance: GUAIFENESIN
  41. HEPARIN (IODISED) SODIUM [Concomitant]
  42. HYDRALAZINE [Concomitant]
     Active Substance: HYDRALAZINE HYDROCHLORIDE
  43. INSULIN LISPRO [Concomitant]
     Active Substance: INSULIN LISPRO
  44. LEVOFLOXACIN [Concomitant]
     Active Substance: LEVOFLOXACIN
  45. MEROPENEM [Concomitant]
     Active Substance: MEROPENEM
  46. METOCLOPRAMIDE [Concomitant]
     Active Substance: METOCLOPRAMIDE
  47. MICAFUNGIN [Concomitant]
     Active Substance: MICAFUNGIN
  48. MORPHINE [Concomitant]
     Active Substance: MORPHINE
  49. NOREPINEPHRINE [Concomitant]
     Active Substance: NOREPINEPHRINE
  50. PANTOPRAZOLE [Concomitant]
     Active Substance: PANTOPRAZOLE
  51. PHENYLEPHRINE [Concomitant]
     Active Substance: PHENYLEPHRINE HYDROCHLORIDE
  52. PROPOFOL [Concomitant]
     Active Substance: PROPOFOL
  53. TAMSULOSIN [Concomitant]
     Active Substance: TAMSULOSIN
  54. VANCOMYCIN [Concomitant]
     Active Substance: VANCOMYCIN
  55. VASOPRESSIN [Concomitant]
     Active Substance: VASOPRESSIN
  56. CEFTRIAXONE [Concomitant]
     Active Substance: CEFTRIAXONE
  57. CYCLOPHOSPHAMIDE [Concomitant]
     Active Substance: CYCLOPHOSPHAMIDE
  58. CYTARABINE [Concomitant]
     Active Substance: CYTARABINE
  59. DILTIAZEM [Concomitant]
     Active Substance: DILTIAZEM
  60. FENTANYL [Concomitant]
     Active Substance: FENTANYL
  61. FLUDARABINE [Concomitant]
     Active Substance: FLUDARABINE PHOSPHATE
  62. FOLIC ACID [Concomitant]
     Active Substance: FOLIC ACID
  63. FOSAPREPITANT [Concomitant]
     Active Substance: FOSAPREPITANT
  64. INSULIN GLARGINE [Concomitant]
     Active Substance: INSULIN GLARGINE
  65. IPRATROPIUM BROMIDE AND ALBUTEROL SULFATE [Concomitant]
     Active Substance: ALBUTEROL SULFATE\IPRATROPIUM BROMIDE
  66. LORAZEPAM [Concomitant]
     Active Substance: LORAZEPAM
  67. METHOTREXATE [Concomitant]
     Active Substance: METHOTREXATE
  68. METHYLPREDNISOLONE SODIUM SUCCINATE [Concomitant]
     Active Substance: METHYLPREDNISOLONE SODIUM SUCCINATE
  69. METOPROLOL TARTRATE [Concomitant]
     Active Substance: METOPROLOL TARTRATE
  70. OMEGA-3 + -6 COMPLEX [Concomitant]
  71. ONDANSETRON [Concomitant]
     Active Substance: ONDANSETRON
  72. PALONOSETRON [Concomitant]
     Active Substance: PALONOSETRON
  73. ZINC OXIDE [Concomitant]
     Active Substance: ZINC OXIDE
  74. VINCRISTINE [Concomitant]
     Active Substance: VINCRISTINE
  75. URSODIOL [Concomitant]
     Active Substance: URSODIOL
  76. SUCRALFATE AND BERBERINE [Concomitant]

REACTIONS (2)
  - Immune effector cell-associated neurotoxicity syndrome [Fatal]
  - Cytokine release syndrome [Fatal]

NARRATIVE: CASE EVENT DATE: 20221013
